FAERS Safety Report 8173210-8 (Version None)
Quarter: 2012Q1

REPORT INFORMATION
  Report Type: 
  Country: None (occurrence: None)
  Receive Date: 20120229
  Receipt Date: 20110826
  Transmission Date: 20120608
  Serious: No
  Sender: FDA-Public Use
  Company Number: US-GLAXOSMITHKLINE-A0943259A

PATIENT
  Sex: Male

DRUGS (3)
  1. WELLBUTRIN [Suspect]
     Indication: PRODUCT USED FOR UNKNOWN INDICATION
     Route: 065
  2. LAMICTAL [Suspect]
     Indication: PRODUCT USED FOR UNKNOWN INDICATION
     Route: 065
  3. IMITREX [Suspect]
     Indication: HEADACHE
     Route: 065

REACTIONS (6)
  - AFFECTIVE DISORDER [None]
  - RASH [None]
  - AGITATION [None]
  - INFLUENZA LIKE ILLNESS [None]
  - INSOMNIA [None]
  - DRUG INEFFECTIVE [None]
